FAERS Safety Report 6961751-8 (Version None)
Quarter: 2010Q3

REPORT INFORMATION
  Report Type: 
  Country: None (occurrence: None)
  Receive Date: 20100901
  Receipt Date: 20100827
  Transmission Date: 20110219
  Serious: Yes (Hospitalization)
  Sender: FDA-Public Use
  Company Number: FR-AMGEN-QUU435181

PATIENT
  Sex: Male

DRUGS (4)
  1. ENBREL [Suspect]
     Indication: RHEUMATOID ARTHRITIS
     Route: 058
     Dates: start: 20091001, end: 20100729
  2. CORTISONE ACETATE [Concomitant]
     Indication: RHEUMATOID ARTHRITIS
     Dosage: UNKNOWN
     Dates: start: 20090401
  3. METHOTREXATE [Concomitant]
     Indication: RHEUMATOID ARTHRITIS
     Dosage: 15 MG TOTAL WEEKLY
     Dates: start: 20090401
  4. METHOTREXATE [Concomitant]
     Dosage: 17.5 MG TOTAL WEEKLY

REACTIONS (2)
  - DYSPNOEA [None]
  - VENTRICULAR HYPOKINESIA [None]
